FAERS Safety Report 6274366-4 (Version None)
Quarter: 2009Q3

REPORT INFORMATION
  Report Type: 
  Country: None (occurrence: None)
  Receive Date: 20090720
  Receipt Date: 20090706
  Transmission Date: 20100115
  Serious: Yes (Other)
  Sender: FDA-Public Use
  Company Number: DE-MYLANLABS-2009S1012043

PATIENT
  Age: 26 Year
  Sex: Female
  Weight: 70 kg

DRUGS (4)
  1. COFFEINUM N [Suspect]
     Indication: INTENTIONAL OVERDOSE
     Route: 048
     Dates: start: 20090706, end: 20090706
  2. CITALOPRAM HYDROBROMIDE [Suspect]
     Indication: INTENTIONAL OVERDOSE
     Route: 048
     Dates: start: 20090706, end: 20090706
  3. HOGGAR NIGHT [Suspect]
     Indication: INTENTIONAL OVERDOSE
     Route: 048
     Dates: start: 20090706, end: 20090706
  4. IBU [Suspect]
     Indication: DRUG USE FOR UNKNOWN INDICATION
     Route: 048
     Dates: start: 20090706, end: 20090706

REACTIONS (3)
  - HAEMATEMESIS [None]
  - INTENTIONAL OVERDOSE [None]
  - SUICIDE ATTEMPT [None]
